FAERS Safety Report 9838338 (Version 1)
Quarter: 2014Q1

REPORT INFORMATION
  Report Type: Spontaneous
  Country: CH (occurrence: CH)
  Receive Date: 20140123
  Receipt Date: 20140123
  Transmission Date: 20141002
  Serious: Yes (Life-Threatening)
  Sender: FDA-Public Use
  Company Number: CH-BAYER-2014-007345

PATIENT
  Age: 79 Year
  Sex: Male

DRUGS (6)
  1. ASPIRIN CARDIO [Suspect]
     Indication: CEREBROVASCULAR DISORDER
     Dosage: 100 MG, QD
     Route: 048
     Dates: start: 201310
  2. PLAVIX [Interacting]
     Indication: CEREBROVASCULAR DISORDER
     Dosage: 75 MG, QD
     Route: 048
     Dates: start: 201310
  3. INFLAMAC [Interacting]
     Dosage: 1 DF, UNK
     Route: 048
     Dates: start: 201312, end: 20131215
  4. DIAMICRON [Concomitant]
     Indication: TYPE 2 DIABETES MELLITUS
     Dosage: 60 MG, QD
     Route: 048
     Dates: start: 2013
  5. CRESTOR [Concomitant]
     Dosage: 10 MG, QD
     Route: 048
  6. LISTRIL [Concomitant]
     Indication: ESSENTIAL HYPERTENSION
     Dosage: 5 MG, QD
     Route: 048

REACTIONS (9)
  - Labelled drug-drug interaction medication error [Unknown]
  - Upper gastrointestinal haemorrhage [Recovered/Resolved]
  - Duodenal ulcer [Unknown]
  - Haemoglobin decreased [Recovering/Resolving]
  - Creatinine renal clearance decreased [Unknown]
  - Abdominal discomfort [Recovered/Resolved]
  - Haematemesis [Recovered/Resolved]
  - Melaena [Recovered/Resolved]
  - Haematochezia [Recovered/Resolved]
